FAERS Safety Report 9246529 (Version 3)
Quarter: 2013Q2

REPORT INFORMATION
  Report Type: Spontaneous
  Country: FR (occurrence: FR)
  Receive Date: 20130422
  Receipt Date: 20130515
  Transmission Date: 20140414
  Serious: Yes (Hospitalization, Other)
  Sender: FDA-Public Use
  Company Number: FR-009507513-1304FRA006674

PATIENT
  Age: 43 Year
  Sex: Female

DRUGS (7)
  1. IMPLANON [Suspect]
     Indication: CONTRACEPTION
     Dosage: UNK
     Route: 058
     Dates: end: 201107
  2. ATARAX (ALPRAZOLAM) [Concomitant]
  3. ATHYMIL [Concomitant]
  4. LEVOTHYROX [Concomitant]
  5. LYRICA [Concomitant]
  6. RIVOTRIL [Concomitant]
  7. FORLAX [Concomitant]

REACTIONS (1)
  - Pulmonary embolism [Recovered/Resolved]
